FAERS Safety Report 7931728-4 (Version None)
Quarter: 2011Q4

REPORT INFORMATION
  Report Type: 
  Country: None (occurrence: None)
  Receive Date: 20111121
  Receipt Date: 20111118
  Transmission Date: 20120403
  Serious: Yes (Death, Other)
  Sender: FDA-Public Use
  Company Number: PHHY2011NL81532

PATIENT
  Sex: Male
  Weight: 90 kg

DRUGS (14)
  1. BETA ANTAGONIST [Concomitant]
  2. SINTROM [Concomitant]
  3. METOPROLOL TARTRATE [Concomitant]
     Dosage: 100 MG, ONCE DAILY
  4. LIPITOR [Concomitant]
  5. BICALUTAMIDE [Concomitant]
  6. ZOMETA [Suspect]
     Dosage: 4 MG/5ML ONCE PER 28 DAYS
     Dates: start: 20110819
  7. SPIRODACTONE [Concomitant]
  8. ACETYLSALICYLIC ACID SRT [Concomitant]
  9. ZESTRIL [Concomitant]
     Dosage: 20 MG, UNK
  10. METFORMIN HCL [Concomitant]
  11. ZOMETA [Suspect]
     Indication: PROSTATE CANCER METASTATIC
     Dosage: 4 MG/5ML ONCE PER 28 DAYS
     Dates: start: 20110525
  12. OXYCONTIN [Concomitant]
  13. ZOMETA [Suspect]
     Dosage: 4 MG/5ML ONCE PER 28 DAYS
     Dates: start: 20110913
  14. PLAVIX [Concomitant]
     Dosage: 75 UKN, UNK

REACTIONS (3)
  - CARDIAC FAILURE [None]
  - FLUID RETENTION [None]
  - GOUT [None]
